FAERS Safety Report 15681679 (Version 1)
Quarter: 2018Q4

REPORT INFORMATION
  Report Type: Spontaneous
  Country: FR (occurrence: FR)
  Receive Date: 20181203
  Receipt Date: 20181203
  Transmission Date: 20190205
  Serious: Yes (Hospitalization)
  Sender: FDA-Public Use
  Company Number: FR-ELI_LILLY_AND_COMPANY-FR201811013738

PATIENT
  Age: 68 Year
  Sex: Male

DRUGS (2)
  1. ALIMTA [Suspect]
     Active Substance: PEMETREXED DISODIUM
     Indication: LUNG ADENOCARCINOMA
     Dosage: 1 DF, UNKNOWN
     Route: 041
     Dates: start: 201802
  2. SPECIAFOLDINE [Concomitant]
     Active Substance: FOLIC ACID
     Indication: PRODUCT USED FOR UNKNOWN INDICATION
     Dosage: .4 MG, DAILY
     Route: 048
     Dates: start: 201802

REACTIONS (2)
  - Scleroderma-like reaction [Not Recovered/Not Resolved]
  - Dermo-hypodermitis [Not Recovered/Not Resolved]

NARRATIVE: CASE EVENT DATE: 201810
